FAERS Safety Report 5287000-7 (Version None)
Quarter: 2007Q1

REPORT INFORMATION
  Report Type: 
  Country: None (occurrence: None)
  Receive Date: 20070329
  Receipt Date: 20070316
  Transmission Date: 20070707
  Serious: Yes (Other)
  Sender: FDA-Public Use
  Company Number: 2007SP005188

PATIENT
  Age: 59 Year
  Sex: Male

DRUGS (1)
  1. EPTIFIBATIDE (S-P) (EPTIFIBATIDE) [Suspect]
     Indication: DRUG USE FOR UNKNOWN INDICATION
     Dosage: ONCE;INBO
     Route: 040
     Dates: start: 20070301, end: 20070301

REACTIONS (3)
  - ANAPHYLACTIC SHOCK [None]
  - NONSPECIFIC REACTION [None]
  - TREMOR [None]
